FAERS Safety Report 10678477 (Version 1)
Quarter: 2014Q4

REPORT INFORMATION
  Report Type: Spontaneous
  Country: US (occurrence: None)
  Receive Date: 20141223
  Receipt Date: 20141223
  Transmission Date: 20150529
  Serious: Yes (Other)
  Sender: FDA-Public Use
  Company Number: COR_00191_2014

PATIENT
  Age: 62 Year
  Sex: Female

DRUGS (5)
  1. IRINOTECAN [Suspect]
     Active Substance: IRINOTECAN
     Indication: SMALL CELL LUNG CANCER
     Dosage: CYCLE 3?
  2. CISPLATIN. [Suspect]
     Active Substance: CISPLATIN
     Indication: SMALL CELL LUNG CANCER
     Dosage: 75 MG/M2, DAY 1; CYCLE 1
  3. NEUPOGEN [Concomitant]
     Active Substance: FILGRASTIM
  4. ETOPOSIDE. [Suspect]
     Active Substance: ETOPOSIDE
     Indication: SMALL CELL LUNG CANCER
     Dosage: 100 MG/M2, DAYS 1 -3; CYCLE 1?
  5. RADIATION [Suspect]
     Active Substance: RADIATION THERAPY
     Indication: SMALL CELL LUNG CANCER
     Dosage: 66 GY OVER 33 FRACTIONS??

REACTIONS (6)
  - Type IV hypersensitivity reaction [None]
  - Neutropenia [None]
  - Dermatophytosis [None]
  - Leukopenia [None]
  - Trichophytic granuloma [None]
  - Dermatitis psoriasiform [None]
